FAERS Safety Report 19900105 (Version 1)
Quarter: 2021Q3

REPORT INFORMATION
  Report Type: Spontaneous
  Country: FR (occurrence: FR)
  Receive Date: 20210929
  Receipt Date: 20210929
  Transmission Date: 20211014
  Serious: Yes (Disabling)
  Sender: FDA-Public Use
  Company Number: FR-MYLANLABS-2021M1066667

PATIENT
  Sex: Male

DRUGS (1)
  1. ISOTRETINOIN. [Suspect]
     Active Substance: ISOTRETINOIN
     Indication: ACNE
     Dosage: UNK

REACTIONS (9)
  - Cognitive disorder [Unknown]
  - Alopecia [Unknown]
  - Disability [Not Recovered/Not Resolved]
  - Hyperhidrosis [Unknown]
  - Product prescribing issue [Unknown]
  - Arthralgia [Unknown]
  - Depression [Unknown]
  - Gastrointestinal disorder [Unknown]
  - Fatigue [Unknown]
